FAERS Safety Report 6660474-2 (Version None)
Quarter: 2010Q1

REPORT INFORMATION
  Report Type: 
  Country: None (occurrence: None)
  Receive Date: 20100331
  Receipt Date: 20100228
  Transmission Date: 20100710
  Serious: No
  Sender: FDA-Public Use
  Company Number: US-BAYER-201012606BCC

PATIENT
  Age: 40 Year
  Sex: Male
  Weight: 66 kg

DRUGS (1)
  1. ALEVE (CAPLET) [Suspect]
     Indication: DRUG USE FOR UNKNOWN INDICATION
     Dosage: TOTAL DAILY DOSE: 440 MG  UNIT DOSE: 220 MG
     Route: 048
     Dates: start: 20100228

REACTIONS (3)
  - PRURITUS [None]
  - THROAT IRRITATION [None]
  - URTICARIA [None]
